FAERS Safety Report 10640123 (Version 1)
Quarter: 2014Q4

REPORT INFORMATION
  Report Type: Spontaneous
  Country: US (occurrence: US)
  Receive Date: 20141209
  Receipt Date: 20141209
  Transmission Date: 20150529
  Serious: No
  Sender: FDA-Public Use
  Company Number: US-SHIRE-US201408043

PATIENT
  Age: 82 Year
  Sex: Female
  Weight: 70.3 kg

DRUGS (1)
  1. PENTASA [Suspect]
     Active Substance: MESALAMINE
     Indication: CROHN^S DISEASE
     Dosage: 1000 MG(TWO 500 MG CAPSULES), 4X/DAY:QID
     Route: 048
     Dates: start: 201409, end: 201410

REACTIONS (2)
  - No adverse event [Unknown]
  - Product use issue [Recovered/Resolved]

NARRATIVE: CASE EVENT DATE: 201409
